FAERS Safety Report 20875339 (Version 1)
Quarter: 2022Q2

REPORT INFORMATION
  Report Type: Report from Study
  Country: EG (occurrence: EG)
  Receive Date: 20220526
  Receipt Date: 20220526
  Transmission Date: 20220721
  Serious: Yes (Other)
  Sender: FDA-Public Use
  Company Number: EG-NOVARTISPH-NVSC2022EG120440

PATIENT
  Age: 36 Year
  Sex: Female

DRUGS (7)
  1. GILENYA [Suspect]
     Active Substance: FINGOLIMOD HYDROCHLORIDE
     Indication: Multiple sclerosis
     Dosage: 0.5 MG, QD
     Route: 048
     Dates: start: 20220228, end: 20220315
  2. GILENYA [Suspect]
     Active Substance: FINGOLIMOD HYDROCHLORIDE
     Dosage: 0.5 MG, QD
     Route: 048
     Dates: start: 20220511
  3. OMEGA 3 [Concomitant]
     Active Substance: CAPSAICIN
     Indication: Multiple sclerosis
     Dosage: 1 DOSAGE FORM, QD
     Route: 065
     Dates: start: 2021
  4. LEO [Concomitant]
     Indication: Multiple sclerosis
     Dosage: 1 DOSAGE FORM, QD
     Route: 065
     Dates: start: 20220511
  5. .ALPHA.-LIPOIC ACID [Concomitant]
     Active Substance: .ALPHA.-LIPOIC ACID
     Indication: Multiple sclerosis
     Dosage: 1 DOSAGE FORM, QD
     Route: 065
     Dates: start: 20220511
  6. BENFOTIAMINE\CYANOCOBALAMIN\PYRIDOXINE HYDROCHLORIDE [Concomitant]
     Active Substance: BENFOTIAMINE\CYANOCOBALAMIN\PYRIDOXINE HYDROCHLORIDE
     Indication: Multiple sclerosis
     Dosage: 1 DOSAGE FORM, QD
     Route: 065
     Dates: start: 20220517
  7. CORTISONE [Concomitant]
     Active Substance: CORTISONE
     Indication: Multiple sclerosis
     Dosage: 1 DOSAGE FORM, QOD, (ONE INJECTION EVERY OTHER DAY TOTAL OF 9 AMPOULES)
     Route: 065
     Dates: start: 20220501, end: 20220516

REACTIONS (9)
  - Defaecation urgency [Recovered/Resolved]
  - Constipation [Not Recovered/Not Resolved]
  - Abdominal pain upper [Not Recovered/Not Resolved]
  - Limb discomfort [Not Recovered/Not Resolved]
  - Gait inability [Not Recovered/Not Resolved]
  - Gait disturbance [Not Recovered/Not Resolved]
  - Balance disorder [Not Recovered/Not Resolved]
  - Urinary incontinence [Not Recovered/Not Resolved]
  - Flatulence [Not Recovered/Not Resolved]

NARRATIVE: CASE EVENT DATE: 20220315
